FAERS Safety Report 5879715-4 (Version None)
Quarter: 2008Q3

REPORT INFORMATION
  Report Type: 
  Country: None (occurrence: None)
  Receive Date: 20080912
  Receipt Date: 20080902
  Transmission Date: 20090109
  Serious: Yes (Hospitalization)
  Sender: FDA-Public Use
  Company Number: JP-MERCK-0807USA03149

PATIENT
  Age: 76 Year
  Sex: Female
  Weight: 56 kg

DRUGS (8)
  1. COZAAR [Suspect]
     Indication: HYPERTENSION
     Route: 048
     Dates: start: 20080605, end: 20080714
  2. AMLODIPINE BESYLATE [Concomitant]
     Indication: HYPERTENSION
     Route: 048
     Dates: start: 20060830
  3. FASTIC [Concomitant]
     Indication: DIABETES MELLITUS
     Route: 048
     Dates: start: 20080328
  4. PRAVASTATIN SODIUM [Concomitant]
     Indication: HYPERLIPIDAEMIA
     Route: 048
     Dates: start: 20070214
  5. FOSAMAX [Concomitant]
     Indication: OSTEOPOROSIS
     Route: 048
     Dates: start: 20070214
  6. PREDONINE [Concomitant]
     Indication: PEMPHIGOID
     Route: 048
     Dates: start: 20060519
  7. FAMOSTAGINE [Concomitant]
     Indication: PROPHYLAXIS
     Route: 048
     Dates: start: 20060519
  8. ALLELOCK [Concomitant]
     Indication: PEMPHIGOID
     Route: 048
     Dates: start: 20060509

REACTIONS (1)
  - PEMPHIGOID [None]
